FAERS Safety Report 20423356 (Version 1)
Quarter: 2022Q1

REPORT INFORMATION
  Report Type: Spontaneous
  Country: CA (occurrence: CA)
  Receive Date: 20220203
  Receipt Date: 20220203
  Transmission Date: 20220423
  Serious: Yes (Other)
  Sender: FDA-Public Use
  Company Number: CA-ALLERGAN-1824600US

PATIENT
  Sex: Female

DRUGS (3)
  1. LATISSE [Suspect]
     Active Substance: BIMATOPROST
     Indication: Growth of eyelashes
     Dosage: 2 GTT, QHS
     Route: 061
     Dates: start: 201501, end: 20180415
  2. LATISSE [Suspect]
     Active Substance: BIMATOPROST
     Indication: Growth of eyelashes
     Dosage: 2 GTT, QHS
  3. LATISSE [Suspect]
     Active Substance: BIMATOPROST
     Indication: Growth of eyelashes
     Dosage: 2 GTT, QHS

REACTIONS (8)
  - Surgery [Unknown]
  - Eyelid irritation [Unknown]
  - Erythema of eyelid [Unknown]
  - Blepharal pigmentation [Unknown]
  - Eye pain [Unknown]
  - Madarosis [Unknown]
  - Drug ineffective [Unknown]
  - Product quality issue [Unknown]
